FAERS Safety Report 11788810 (Version 1)
Quarter: 2015Q4

REPORT INFORMATION
  Report Type: Spontaneous
  Country: US (occurrence: None)
  Receive Date: 20151130
  Receipt Date: 20151130
  Transmission Date: 20160305
  Serious: Yes (Other)
  Sender: FDA-Public Use
  Company Number: None

PATIENT
  Age: 33 Year
  Sex: Female
  Weight: 77.11 kg

DRUGS (10)
  1. ALPRAZOLAM. [Suspect]
     Active Substance: ALPRAZOLAM
     Indication: DRUG HYPERSENSITIVITY
     Dosage: AS NEED
     Route: 048
     Dates: start: 20151126, end: 20151126
  2. RANITIDINE [Concomitant]
     Active Substance: RANITIDINE\RANITIDINE HYDROCHLORIDE
  3. ALPRAZOLAM. [Suspect]
     Active Substance: ALPRAZOLAM
     Indication: ANXIETY
     Dosage: AS NEED
     Route: 048
     Dates: start: 20151126, end: 20151126
  4. PROBIOTIC [Concomitant]
     Active Substance: PROBIOTICS NOS
  5. QUERCETIN [Concomitant]
     Active Substance: QUERCETIN
  6. MIRAPEX [Concomitant]
     Active Substance: PRAMIPEXOLE DIHYDROCHLORIDE
  7. EPIPEN [Concomitant]
     Active Substance: EPINEPHRINE
  8. VITAMIN D [Concomitant]
     Active Substance: CHOLECALCIFEROL
  9. TYLENOL EXTRA STRENGTH [Concomitant]
     Active Substance: ACETAMINOPHEN
  10. BENADRYL [Concomitant]
     Active Substance: DIPHENHYDRAMINE HYDROCHLORIDE

REACTIONS (3)
  - Vomiting [None]
  - Nausea [None]
  - Diarrhoea [None]

NARRATIVE: CASE EVENT DATE: 20151126
